FAERS Safety Report 5337860-6 (Version None)
Quarter: 2007Q2

REPORT INFORMATION
  Report Type: 
  Country: None (occurrence: None)
  Receive Date: 20070308
  Receipt Date: 20070118
  Transmission Date: 20071010
  Serious: Yes (Disabling)
  Sender: FDA-Public Use
  Company Number: 2007-BP-00849BP

PATIENT
  Sex: Female

DRUGS (4)
  1. SPIRIVA [Suspect]
     Dosage: 18 MCG (18 MCG, 1 IN 1 D), IH
     Route: 055
     Dates: start: 20061001, end: 20070113
  2. XANAX [Concomitant]
  3. ALBUTEROL [Concomitant]
  4. TRAMADOL HCL [Concomitant]

REACTIONS (2)
  - CATARACT [None]
  - EYE PAIN [None]
